FAERS Safety Report 7050322-3 (Version None)
Quarter: 2010Q4

REPORT INFORMATION
  Report Type: 
  Country: None (occurrence: None)
  Receive Date: 20101018
  Receipt Date: 20101005
  Transmission Date: 20110411
  Serious: Yes (Other)
  Sender: FDA-Public Use
  Company Number: CA-BAYER-201035947NA

PATIENT
  Sex: Female

DRUGS (1)
  1. ADALAT CC [Suspect]
     Indication: HYPERTENSION
     Dosage: 1 X 30 MG AND 1 X 60 MG
     Route: 048

REACTIONS (2)
  - CEREBROVASCULAR ACCIDENT [None]
  - CONVULSION [None]
